FAERS Safety Report 5481080-1 (Version None)
Quarter: 2007Q4

REPORT INFORMATION
  Report Type: 
  Country: None (occurrence: None)
  Receive Date: 20071009
  Receipt Date: 20070927
  Transmission Date: 20080405
  Serious: Yes (Other)
  Sender: FDA-Public Use
  Company Number: CA-PFIZER INC-2007082550

PATIENT
  Age: 47 Year
  Sex: Female

DRUGS (5)
  1. LYRICA [Suspect]
     Indication: ROAD TRAFFIC ACCIDENT
     Route: 048
  2. VITAMIN CAP [Concomitant]
  3. OMEPRAZOLE [Concomitant]
  4. SYNTHROID [Concomitant]
  5. IMITREX [Concomitant]

REACTIONS (4)
  - FACIAL PALSY [None]
  - HEADACHE [None]
  - PARTIAL SEIZURES [None]
  - TOOTHACHE [None]
